FAERS Safety Report 5342226-9 (Version None)
Quarter: 2007Q2

REPORT INFORMATION
  Report Type: 
  Country: None (occurrence: None)
  Receive Date: 20070601
  Receipt Date: 20070530
  Transmission Date: 20071010
  Serious: Yes (Other)
  Sender: FDA-Public Use
  Company Number: A0653303A

PATIENT
  Sex: Female

DRUGS (1)
  1. SENSODYNE-F [Suspect]
     Indication: DRUG USE FOR UNKNOWN INDICATION

REACTIONS (3)
  - CONVULSION [None]
  - MOUTH ULCERATION [None]
  - MUSCLE SPASMS [None]
